FAERS Safety Report 4662461-2 (Version None)
Quarter: 2005Q2

REPORT INFORMATION
  Report Type: 
  Country: None (occurrence: None)
  Receive Date: 20050512
  Receipt Date: 20050505
  Transmission Date: 20051028
  Serious: Yes (Hospitalization)
  Sender: FDA-Public Use
  Company Number: GBWYE645005MAY05

PATIENT
  Age: 49 Year
  Sex: Female

DRUGS (2)
  1. EFFEXOR [Suspect]
     Indication: DEPRESSION
     Dosage: APPROXIMATELY 150 MG
  2. EFFEXOR [Suspect]
     Indication: DYSPHORIA
     Dosage: APPROXIMATELY 150 MG

REACTIONS (2)
  - COAGULATION FACTOR V LEVEL INCREASED [None]
  - TRANSIENT ISCHAEMIC ATTACK [None]
